FAERS Safety Report 4553645-2 (Version None)
Quarter: 2004Q4

REPORT INFORMATION
  Report Type: 
  Country: None (occurrence: None)
  Receive Date: 20041227
  Receipt Date: 20041019
  Transmission Date: 20050328
  Serious: No
  Sender: FDA-Public Use
  Company Number: 04P-163-0278055-00

PATIENT
  Age: 62 Year
  Sex: Female
  Weight: 111 kg

DRUGS (5)
  1. HUMIRA [Suspect]
     Indication: RHEUMATOID ARTHRITIS
     Dosage: 40 MG, 1 IN 2 WK, SUBCUTANEOUS
     Route: 058
     Dates: start: 20040601, end: 20041005
  2. IRBESARTAN [Concomitant]
  3. BUCINDOLOL HYDROCHLORIDE [Concomitant]
  4. LEXAPRO [Concomitant]
  5. METHOTREXATE [Concomitant]

REACTIONS (2)
  - LIPOMA [None]
  - WEIGHT INCREASED [None]
